FAERS Safety Report 5975138-8 (Version None)
Quarter: 2008Q4

REPORT INFORMATION
  Report Type: 
  Country: None (occurrence: None)
  Receive Date: 20081128
  Receipt Date: 20081113
  Transmission Date: 20090506
  Serious: Yes (Other)
  Sender: FDA-Public Use
  Company Number: 2008EU002591

PATIENT
  Sex: Female

DRUGS (3)
  1. PROGRAF [Suspect]
     Indication: TRANSPLANT
     Dosage: 1 MG, BID, ORAL, 0.5 MG, BID, ORAL
     Route: 048
  2. CELLCEPT [Concomitant]
  3. PRAVASTATIN [Concomitant]

REACTIONS (4)
  - DRUG HYPERSENSITIVITY [None]
  - EAR INFECTION [None]
  - PHARYNGITIS [None]
  - RHINITIS [None]
